FAERS Safety Report 10549618 (Version 1)
Quarter: 2014Q4

REPORT INFORMATION
  Report Type: Spontaneous
  Country: BR (occurrence: BR)
  Receive Date: 20141028
  Receipt Date: 20141028
  Transmission Date: 20150529
  Serious: Yes (Other)
  Sender: FDA-Public Use
  Company Number: BR-BAYER-2014-156877

PATIENT
  Age: 20 Year
  Sex: Female

DRUGS (4)
  1. YASMIN [Suspect]
     Active Substance: DROSPIRENONE\ETHINYL ESTRADIOL
     Indication: CONTRACEPTION
     Dosage: UNK
     Route: 048
     Dates: start: 2011, end: 201203
  2. DIANE 35 [Suspect]
     Active Substance: CYPROTERONE ACETATE\ETHINYL ESTRADIOL
     Indication: POLYCYSTIC OVARIES
     Dosage: UNK
     Route: 048
     Dates: end: 2011
  3. DIANE 35 [Suspect]
     Active Substance: CYPROTERONE ACETATE\ETHINYL ESTRADIOL
     Indication: CONTRACEPTION
  4. YASMIN [Suspect]
     Active Substance: DROSPIRENONE\ETHINYL ESTRADIOL
     Indication: POLYCYSTIC OVARIES

REACTIONS (10)
  - Headache [Recovered/Resolved]
  - Migraine [None]
  - Nausea [None]
  - Cerebral venous thrombosis [None]
  - Strabismus [None]
  - Vomiting [None]
  - Brain oedema [None]
  - Hyporesponsive to stimuli [None]
  - Headache [None]
  - Diplopia [None]

NARRATIVE: CASE EVENT DATE: 2004
